FAERS Safety Report 9154022 (Version 1)
Quarter: 2013Q1

REPORT INFORMATION
  Report Type: Spontaneous
  Country: FR (occurrence: None)
  Receive Date: 20130205
  Receipt Date: 20130205
  Transmission Date: 20140127
  Serious: No
  Sender: FDA-Public Use
  Company Number: TPA2012A09872

PATIENT
  Age: 65 Year
  Sex: Male

DRUGS (1)
  1. ADENURIC (FEBUXOSTAT) [Suspect]
     Indication: GOUT
     Route: 048
     Dates: start: 20120811, end: 20121114

REACTIONS (12)
  - Oropharyngeal pain [None]
  - Dysuria [None]
  - Chest pain [None]
  - Bronchitis [None]
  - Musculoskeletal stiffness [None]
  - Vision blurred [None]
  - Hot flush [None]
  - Diarrhoea [None]
  - Myalgia [None]
  - Thirst [None]
  - Gout [None]
  - Arthralgia [None]
